FAERS Safety Report 16127259 (Version 1)
Quarter: 2019Q1

REPORT INFORMATION
  Report Type: Spontaneous
  Country: US (occurrence: US)
  Receive Date: 20190223
  Receipt Date: 20190223
  Transmission Date: 20190418
  Serious: No
  Sender: FDA-Public Use
  Company Number: None

PATIENT
  Age: 73 Year
  Sex: Female

DRUGS (2)
  1. REPATHA [Suspect]
     Active Substance: EVOLOCUMAB
     Indication: LACUNAR STROKE
     Dosage: ?          OTHER FREQUENCY:EVERY 2 WEEKS ; AS DIRECTED?
     Route: 058
     Dates: start: 201901
  2. REPATHA [Suspect]
     Active Substance: EVOLOCUMAB
     Indication: HYPERLIPIDAEMIA
     Dosage: ?          OTHER FREQUENCY:EVERY 2 WEEKS ; AS DIRECTED?
     Route: 058
     Dates: start: 201901

REACTIONS (1)
  - Cystitis [None]
